FAERS Safety Report 16504454 (Version 4)
Quarter: 2022Q2

REPORT INFORMATION
  Report Type: Spontaneous
  Country: US (occurrence: US)
  Receive Date: 20190701
  Receipt Date: 20220628
  Transmission Date: 20220720
  Serious: No
  Sender: FDA-Public Use
  Company Number: US-PFIZER INC-2019282026

PATIENT
  Age: 53 Year
  Sex: Female

DRUGS (22)
  1. DOCETAXEL [Suspect]
     Active Substance: DOCETAXEL
     Indication: Breast cancer metastatic
     Dosage: 182 MG, CYCLIC (4 CYCLES, EVERY THREE WEEKS)
     Dates: start: 20140815, end: 20141128
  2. DOCETAXEL [Suspect]
     Active Substance: DOCETAXEL
     Indication: Breast cancer metastatic
     Dosage: 182 MG, CYCLIC (4 CYCLES, EVERY THREE WEEKS)
     Dates: start: 20140815, end: 20141128
  3. DOCETAXEL [Suspect]
     Active Substance: DOCETAXEL
     Indication: Breast cancer metastatic
     Dosage: 182 MG, CYCLIC (4 CYCLES, EVERY THREE WEEKS)
     Dates: start: 20140815, end: 20141128
  4. DOCETAXEL [Suspect]
     Active Substance: DOCETAXEL
     Indication: Breast cancer metastatic
     Dosage: 182 MG, CYCLIC (4 CYCLES, EVERY THREE WEEKS)
     Dates: start: 20140815, end: 20141128
  5. DOCETAXEL [Suspect]
     Active Substance: DOCETAXEL
     Indication: Breast cancer metastatic
     Dosage: 182 MG, CYCLIC (4 CYCLES, EVERY THREE WEEKS)
     Dates: start: 20140815, end: 20141128
  6. DOCETAXEL [Suspect]
     Active Substance: DOCETAXEL
     Indication: Breast cancer metastatic
     Dosage: 182 MG, CYCLIC (4 CYCLES, EVERY THREE WEEKS)
     Dates: start: 20140815, end: 20141128
  7. DOCETAXEL [Suspect]
     Active Substance: DOCETAXEL
     Indication: Breast cancer metastatic
     Dosage: 182 MG, CYCLIC (4 CYCLES, EVERY THREE WEEKS)
     Dates: start: 20140815, end: 20141128
  8. DOCETAXEL [Suspect]
     Active Substance: DOCETAXEL
     Indication: Breast cancer metastatic
     Dosage: 182 MG, CYCLIC (4 CYCLES, EVERY THREE WEEKS)
     Dates: start: 20140815, end: 20141128
  9. DOCETAXEL [Suspect]
     Active Substance: DOCETAXEL
     Indication: Breast cancer metastatic
     Dosage: 182 MG, CYCLIC (4 CYCLES, EVERY THREE WEEKS)
     Dates: start: 20140815, end: 20141128
  10. DOCETAXEL [Suspect]
     Active Substance: DOCETAXEL
     Indication: Breast cancer metastatic
     Dosage: 182 MG, CYCLIC (4 CYCLES, EVERY THREE WEEKS)
     Dates: start: 20140815, end: 20141128
  11. DOCETAXEL [Suspect]
     Active Substance: DOCETAXEL
     Indication: Breast cancer metastatic
     Dosage: 182 MG, CYCLIC (4 CYCLES, EVERY THREE WEEKS)
     Dates: start: 20140815, end: 20141128
  12. TAXOTERE [Suspect]
     Active Substance: DOCETAXEL
     Indication: Breast cancer metastatic
     Dosage: 182 MG, 182 MG, CYCLIC (4 CYCLES, EVERY THREE WEEKS)
     Dates: start: 20140815, end: 20141128
  13. DOCEFREZ [Suspect]
     Active Substance: DOCETAXEL ANHYDROUS
     Indication: Breast cancer metastatic
     Dosage: 182 MG, CYCLIC (4 CYCLES, EVERY THREE WEEKS)
     Dates: start: 20140815, end: 20141128
  14. PARAPLATIN [Concomitant]
     Active Substance: CARBOPLATIN
     Indication: Chemotherapy
     Dosage: UNK
  15. HERCEPTIN [Concomitant]
     Active Substance: TRASTUZUMAB
     Indication: Chemotherapy
     Dosage: UNK
  16. TRAMADOL [Concomitant]
     Active Substance: TRAMADOL
     Dosage: UNK
     Dates: start: 20110101, end: 20141231
  17. PERCOCET [Concomitant]
     Active Substance: ACETAMINOPHEN\OXYCODONE HYDROCHLORIDE
     Dosage: UNK
     Dates: start: 20110101, end: 20141231
  18. AMBIEN [Concomitant]
     Active Substance: ZOLPIDEM TARTRATE
     Dosage: UNK
     Dates: start: 20110101, end: 20141231
  19. FLEXERIL [Concomitant]
     Active Substance: CYCLOBENZAPRINE HYDROCHLORIDE
     Dosage: UNK
     Dates: start: 20110101, end: 20141231
  20. LOMOTIL [Concomitant]
     Active Substance: ATROPINE SULFATE\DIPHENOXYLATE HYDROCHLORIDE
     Dosage: UNK
     Dates: start: 20110101, end: 20141231
  21. IMODIUM [Concomitant]
     Active Substance: LOPERAMIDE HYDROCHLORIDE
     Dosage: UNK
     Dates: start: 20110101, end: 20141231
  22. ALBUTEROL [Concomitant]
     Active Substance: ALBUTEROL
     Dosage: UNK
     Dates: start: 20110101, end: 20141231

REACTIONS (5)
  - Alopecia [Not Recovered/Not Resolved]
  - Hair texture abnormal [Not Recovered/Not Resolved]
  - Hair colour changes [Not Recovered/Not Resolved]
  - Hair disorder [Not Recovered/Not Resolved]
  - Madarosis [Not Recovered/Not Resolved]

NARRATIVE: CASE EVENT DATE: 20150528
